FAERS Safety Report 12521133 (Version 2)
Quarter: 2016Q4

REPORT INFORMATION
  Report Type: Spontaneous
  Country: FR (occurrence: FR)
  Receive Date: 20160701
  Receipt Date: 20161013
  Transmission Date: 20170207
  Serious: Yes (Other)
  Sender: FDA-Public Use
  Company Number: FR-009507513-1606FRA012308

PATIENT
  Sex: Female
  Weight: 76 kg

DRUGS (2)
  1. NEXPLANON [Suspect]
     Active Substance: ETONOGESTREL
     Indication: CONTRACEPTION
     Dosage: UNK, IN THE RIGHT ARM
     Route: 059
     Dates: start: 20140103
  2. METFORMIN [Concomitant]
     Active Substance: METFORMIN HYDROCHLORIDE
     Indication: BLOOD GLUCOSE ABNORMAL
     Dosage: UNK, TID
     Route: 048
     Dates: start: 201505

REACTIONS (1)
  - Type 2 diabetes mellitus [Unknown]
